FAERS Safety Report 4943474-X (Version None)
Quarter: 2006Q1

REPORT INFORMATION
  Report Type: 
  Country: None (occurrence: None)
  Receive Date: 20060309
  Receipt Date: 20060223
  Transmission Date: 20060701
  Serious: Yes (Other)
  Sender: FDA-Public Use
  Company Number: 2006029154

PATIENT
  Age: 68 Year
  Sex: Male
  Weight: 113.3993 kg

DRUGS (8)
  1. XALATAN [Suspect]
     Indication: INTRAOCULAR PRESSURE INCREASED
     Dosage: 2 DROP ( 1 DROP, 2 IN 1 D), OPHTHALMIC
     Route: 047
  2. ANTI-DIABETICS (ANTI-DIABETICS) [Suspect]
     Indication: DIABETES MELLITUS
  3. COENZYME Q10 [Suspect]
     Indication: ILL-DEFINED DISORDER
  4. ALPHA LIPOIC ACID (THIOCTIC ACID) [Suspect]
     Indication: ILL-DEFINED DISORDER
  5. ACETYLCARNTINE (ACETYLCARNITINE) [Suspect]
     Indication: ILL-DEFINED DISORDER
  6. TENORMIN [Concomitant]
  7. INSULIN (INSULIN) [Concomitant]
  8. BUFFERIN [Concomitant]

REACTIONS (5)
  - BLOOD PRESSURE INCREASED [None]
  - CHEST PAIN [None]
  - CONDITION AGGRAVATED [None]
  - PAIN IN EXTREMITY [None]
  - PROSTATIC OPERATION [None]
